FAERS Safety Report 13843879 (Version 1)
Quarter: 2017Q3

REPORT INFORMATION
  Report Type: Spontaneous
  Country: US (occurrence: US)
  Receive Date: 20170808
  Receipt Date: 20170808
  Transmission Date: 20171127
  Serious: Yes (Other)
  Sender: FDA-Public Use
  Company Number: US-LPDUSPRD-20171105

PATIENT
  Age: 65 Year
  Sex: Female

DRUGS (1)
  1. LIDOCAINE HCL INJECTION, USP (0517-9402-01) [Suspect]
     Active Substance: LIDOCAINE HYDROCHLORIDE
     Dosage: 0.5 MG/MIN
     Route: 042

REACTIONS (3)
  - Sepsis [Unknown]
  - Dizziness [Recovering/Resolving]
  - Acute kidney injury [Unknown]
